FAERS Safety Report 16581392 (Version 2)
Quarter: 2019Q3

REPORT INFORMATION
  Report Type: Spontaneous
  Country: JP (occurrence: JP)
  Receive Date: 20190716
  Receipt Date: 20190820
  Transmission Date: 20191004
  Serious: Yes (Hospitalization, Disabling, Other)
  Sender: FDA-Public Use
  Company Number: JP-JNJFOC-20160805443

PATIENT
  Age: 68 Year
  Sex: Male
  Weight: 71 kg

DRUGS (36)
  1. PLAVIX [Suspect]
     Active Substance: CLOPIDOGREL BISULFATE
     Indication: PRODUCT USED FOR UNKNOWN INDICATION
     Route: 048
     Dates: start: 20130501
  2. YODEL [Concomitant]
     Active Substance: SENNA LEAF
     Route: 048
     Dates: start: 20130420
  3. METFORMIN [Concomitant]
     Active Substance: METFORMIN HYDROCHLORIDE
     Route: 048
     Dates: start: 20170926, end: 20180318
  4. LYRICA [Concomitant]
     Active Substance: PREGABALIN
     Route: 048
     Dates: start: 20150305, end: 20170511
  5. MOHRUS [Concomitant]
     Active Substance: KETOPROFEN
     Route: 061
     Dates: start: 20161124, end: 20180607
  6. PL [Concomitant]
     Active Substance: ACETAMINOPHEN\CAFFEINE\PROMETHAZINE\SALICYLAMIDE
     Route: 048
     Dates: start: 20170107, end: 20170114
  7. TRICHLORMETHIAZIDE [Concomitant]
     Active Substance: TRICHLORMETHIAZIDE
     Route: 048
     Dates: start: 20171211
  8. PHENYTOIN. [Concomitant]
     Active Substance: PHENYTOIN
     Route: 048
     Dates: start: 20130420, end: 20171113
  9. MAINTATE [Concomitant]
     Active Substance: BISOPROLOL FUMARATE
     Route: 048
     Dates: start: 20130420
  10. REZALTAS [Concomitant]
     Active Substance: AZELNIDIPINE\OLMESARTAN MEDOXOMIL
     Route: 048
     Dates: start: 20130718
  11. METFORMIN [Concomitant]
     Active Substance: METFORMIN HYDROCHLORIDE
     Indication: TYPE 2 DIABETES MELLITUS
     Route: 048
     Dates: start: 20131114, end: 20170925
  12. LIMAPROST ALFADEX [Concomitant]
     Active Substance: LIMAPROST
     Route: 048
     Dates: start: 20160414, end: 20180802
  13. LULICON [Concomitant]
     Active Substance: LULICONAZOLE
     Indication: TINEA PEDIS
     Route: 062
     Dates: start: 20160831, end: 20170726
  14. OLMESARTAN [Concomitant]
     Active Substance: OLMESARTAN
     Route: 048
     Dates: start: 20180115
  15. CLENAFIN [Concomitant]
     Active Substance: EFINACONAZOLE
     Indication: DERMATOPHYTOSIS OF NAIL
     Dosage: EXTRA FORMULATION
     Route: 062
     Dates: start: 20160713, end: 20170726
  16. PETROLATUM SALICYLATE [Concomitant]
     Indication: TINEA PEDIS
     Dosage: EXTRA FORMULATION
     Route: 062
     Dates: start: 20160713, end: 20170315
  17. BIOFERMIN [Concomitant]
     Active Substance: DIETARY SUPPLEMENT\PROBIOTICS
     Route: 048
     Dates: start: 20170107, end: 20170114
  18. CILNIDIPINE [Concomitant]
     Active Substance: CILNIDIPINE
     Route: 048
     Dates: start: 20171123, end: 20171127
  19. EFIENT [Concomitant]
     Active Substance: PRASUGREL HYDROCHLORIDE
     Route: 048
     Dates: start: 20180614
  20. PHENYTOIN. [Concomitant]
     Active Substance: PHENYTOIN
     Route: 048
     Dates: start: 20130420, end: 20171113
  21. EXCELASE [Concomitant]
     Active Substance: PANCRELIPASE
     Route: 048
     Dates: start: 20151026
  22. GENTACIN [Concomitant]
     Active Substance: GENTAMICIN SULFATE
     Route: 062
     Dates: start: 20170329, end: 20171108
  23. SOLANAX [Concomitant]
     Active Substance: ALPRAZOLAM
     Route: 048
     Dates: start: 20130420
  24. METFORMIN [Concomitant]
     Active Substance: METFORMIN HYDROCHLORIDE
     Route: 048
     Dates: start: 20180319
  25. LIVALO [Concomitant]
     Active Substance: PITAVASTATIN CALCIUM
     Route: 048
     Dates: start: 20140724
  26. NIFEDIPINE. [Concomitant]
     Active Substance: NIFEDIPINE
     Route: 048
     Dates: start: 20171003, end: 20180521
  27. LYRICA [Concomitant]
     Active Substance: PREGABALIN
     Route: 048
     Dates: start: 20170512, end: 20180802
  28. CARDENALIN [Concomitant]
     Active Substance: DOXAZOSIN MESYLATE
     Route: 048
     Dates: start: 20130718
  29. PHENYTOIN. [Concomitant]
     Active Substance: PHENYTOIN
     Route: 048
     Dates: start: 20171114
  30. MILLIS [Concomitant]
     Route: 061
     Dates: start: 20130420
  31. LANSOPRAZOLE. [Concomitant]
     Active Substance: LANSOPRAZOLE
     Route: 048
     Dates: start: 20160411
  32. CALONAL [Concomitant]
     Active Substance: ACETAMINOPHEN
     Route: 048
     Dates: start: 20170511, end: 20180802
  33. CANAGLIFLOZIN [Suspect]
     Active Substance: CANAGLIFLOZIN
     Indication: TYPE 2 DIABETES MELLITUS
     Route: 048
     Dates: start: 20160411
  34. ACECOL [Concomitant]
     Active Substance: TEMOCAPRIL HYDROCHLORIDE
     Route: 048
     Dates: start: 20130523
  35. LOXONIN [Concomitant]
     Active Substance: LOXOPROFEN SODIUM
     Route: 061
     Dates: start: 20141113, end: 20180607
  36. DELLEGRA [Concomitant]
     Active Substance: FEXOFENADINE HYDROCHLORIDE\PSEUDOEPHEDRINE HYDROCHLORIDE
     Route: 048
     Dates: start: 20170107, end: 20170114

REACTIONS (2)
  - Abdominal discomfort [Recovering/Resolving]
  - Cerebral infarction [Recovering/Resolving]

NARRATIVE: CASE EVENT DATE: 20160626
